FAERS Safety Report 7435366-1 (Version None)
Quarter: 2011Q2

REPORT INFORMATION
  Report Type: 
  Country: None (occurrence: None)
  Receive Date: 20110425
  Receipt Date: 20110414
  Transmission Date: 20111010
  Serious: Yes (Life-Threatening)
  Sender: FDA-Public Use
  Company Number: B0714045A

PATIENT
  Sex: Male
  Weight: 66 kg

DRUGS (9)
  1. ALKERAN [Suspect]
     Indication: STEM CELL TRANSPLANT
     Dosage: 100MGM2 PER DAY
     Route: 042
     Dates: start: 20100118, end: 20100119
  2. KYTRIL [Concomitant]
     Dosage: 6MG PER DAY
     Route: 042
     Dates: start: 20100118, end: 20100119
  3. PRIMPERAN TAB [Concomitant]
     Dosage: 30MG PER DAY
     Dates: start: 20100119, end: 20100121
  4. ZOSYN [Suspect]
     Dosage: 13.5G PER DAY
     Dates: start: 20100129, end: 20100203
  5. ZOSYN [Suspect]
     Dosage: 13.5G PER DAY
     Dates: start: 20100207, end: 20100212
  6. DIFLUCAN [Concomitant]
     Dosage: 400MG PER DAY
     Route: 048
     Dates: start: 20100118, end: 20100120
  7. CRAVIT [Concomitant]
     Dosage: 500MG PER DAY
     Route: 048
     Dates: start: 20100118, end: 20100129
  8. VICCLOX [Concomitant]
     Dosage: 1000MG PER DAY
     Route: 048
     Dates: start: 20100118, end: 20100120
  9. BAKTAR [Concomitant]
     Dosage: 4IUAX PER DAY
     Route: 048
     Dates: start: 20100118, end: 20100119

REACTIONS (1)
  - SEPSIS [None]
